FAERS Safety Report 4375300-4 (Version None)
Quarter: 2004Q2

REPORT INFORMATION
  Report Type: 
  Country: None (occurrence: None)
  Receive Date: 20040607
  Receipt Date: 20030918
  Transmission Date: 20050107
  Serious: Yes (Other)
  Sender: FDA-Public Use
  Company Number: 345211

PATIENT

DRUGS (4)
  1. ACCUTANE [Suspect]
     Indication: ACNE
     Dosage: 80 MG DAILY ORAL
     Route: 048
     Dates: start: 20030415, end: 20030815
  2. ACCUTANE [Suspect]
     Indication: SCAR
     Dosage: 80 MG DAILY ORAL
     Route: 048
     Dates: start: 20030415, end: 20030815
  3. BIRTH CONTROL PILL (ORAL CONTRACEPTIVES NOS) [Concomitant]
  4. COUMADIN [Concomitant]

REACTIONS (2)
  - ABORTION SPONTANEOUS [None]
  - ADVERSE EVENT [None]
